FAERS Safety Report 7039926-1 (Version None)
Quarter: 2010Q4

REPORT INFORMATION
  Report Type: 
  Country: None (occurrence: None)
  Receive Date: 20101012
  Receipt Date: 20100930
  Transmission Date: 20110411
  Serious: Yes (Other)
  Sender: FDA-Public Use
  Company Number: US-PFIZER INC-2010124777

PATIENT
  Age: 25 Year

DRUGS (1)
  1. TOVIAZ [Suspect]

REACTIONS (2)
  - BLINDNESS UNILATERAL [None]
  - VISUAL FIELD DEFECT [None]
